FAERS Safety Report 14181552 (Version 2)
Quarter: 2018Q1

REPORT INFORMATION
  Report Type: Spontaneous
  Country: NO (occurrence: NO)
  Receive Date: 20171113
  Receipt Date: 20180205
  Transmission Date: 20180508
  Serious: Yes (Death)
  Sender: FDA-Public Use
  Company Number: NO-ROCHE-2021967

PATIENT
  Age: 74 Year
  Sex: Male

DRUGS (11)
  1. METOPROLOL TARTRATE. [Concomitant]
     Active Substance: METOPROLOL TARTRATE
     Route: 048
  2. RENITEC COMP. [Concomitant]
     Dosage: EACH DOSE CONTAINING HYDROCHLOROTHIAZIDE 12.5 MG AND ENALAPRIL 20 MG.
     Route: 048
  3. ESBRIET [Suspect]
     Active Substance: PIRFENIDONE
     Indication: IDIOPATHIC PULMONARY FIBROSIS
     Route: 065
     Dates: start: 20170919, end: 20170921
  4. ALLOPUR [Concomitant]
     Active Substance: ALLOPURINOL
     Route: 048
  5. PLAVIX [Concomitant]
     Active Substance: CLOPIDOGREL BISULFATE
     Route: 048
  6. NEURONTIN [Concomitant]
     Active Substance: GABAPENTIN
     Route: 048
  7. SAROTEX [Concomitant]
     Active Substance: AMITRIPTYLINE HYDROCHLORIDE
     Route: 048
  8. JANUVIA [Concomitant]
     Active Substance: SITAGLIPTIN PHOSPHATE
     Route: 048
  9. METFORMIN [Concomitant]
     Active Substance: METFORMIN HYDROCHLORIDE
     Dosage: 1 GRAM IN THE MORNING, 0.5 GRAMS AT LUNCH AND 1 GRAM IN THE EVENING.
     Route: 048
  10. ALBYL-E [Concomitant]
     Active Substance: ASPIRIN\MAGNESIUM OXIDE
     Route: 048
  11. INEGY [Concomitant]
     Active Substance: EZETIMIBE\SIMVASTATIN
     Dosage: EACH DOSE CONTAINING EZETIMIB 10 MG AND SIMVASTATIN 40 MG.
     Route: 048

REACTIONS (3)
  - Acute myocardial infarction [Fatal]
  - Diarrhoea [Unknown]
  - Abdominal pain [Unknown]

NARRATIVE: CASE EVENT DATE: 20170920
